FAERS Safety Report 13738891 (Version 1)
Quarter: 2017Q3

REPORT INFORMATION
  Report Type: Spontaneous
  Country: US (occurrence: US)
  Receive Date: 20170710
  Receipt Date: 20170710
  Transmission Date: 20171127
  Serious: No
  Sender: FDA-Public Use
  Company Number: US-SAOL THERAPEUTICS-2017SAO00864

PATIENT
  Age: 66 Year
  Sex: Male

DRUGS (4)
  1. BACLOFEN. [Suspect]
     Active Substance: BACLOFEN
     Indication: PAIN
     Dosage: UNK ?G, \DAY
     Route: 037
  2. CLONIDINE. [Suspect]
     Active Substance: CLONIDINE
     Dosage: UNK ?G, \DAY
     Route: 037
  3. MORPHINE [Suspect]
     Active Substance: MORPHINE
     Dosage: UNK ?G, \DAY
     Route: 037
  4. OTHER MEDICATIONS [Concomitant]
     Active Substance: UNSPECIFIED INGREDIENT
     Dosage: UNK

REACTIONS (2)
  - Constipation [Recovering/Resolving]
  - Off label use [Unknown]

NARRATIVE: CASE EVENT DATE: 20141219
